FAERS Safety Report 8001957-2 (Version None)
Quarter: 2011Q4

REPORT INFORMATION
  Report Type: 
  Country: None (occurrence: None)
  Receive Date: 20111220
  Receipt Date: 20111201
  Transmission Date: 20120403
  Serious: Yes (Hospitalization, Other)
  Sender: FDA-Public Use
  Company Number: JPI-P-013040

PATIENT
  Age: 49 Year
  Sex: Female
  Weight: 58.9676 kg

DRUGS (8)
  1. OXYCODONE WITH ASPIRIN [Concomitant]
  2. CARISOPRODOL [Concomitant]
  3. GABAPENTIN [Concomitant]
  4. ALPRAZOLAM [Concomitant]
  5. OXYCODONE HYDROCHLORIDE [Concomitant]
  6. XYREM [Suspect]
     Indication: INSOMNIA
     Dosage: 6 GM (3 GM, 2 IN 1 D), ORAL 9 GM (4.5 GM, 2 IN 1 D), ORAL 9 GM (4.5 GM, 2 IN 1 D), ORAL (UNKNOWN), O
     Route: 048
     Dates: start: 20070730
  7. XYREM [Suspect]
     Indication: INSOMNIA
     Dosage: 6 GM (3 GM, 2 IN 1 D), ORAL 9 GM (4.5 GM, 2 IN 1 D), ORAL 9 GM (4.5 GM, 2 IN 1 D), ORAL (UNKNOWN), O
     Route: 048
     Dates: start: 20080111, end: 20110416
  8. XYREM [Suspect]
     Indication: INSOMNIA
     Dosage: 6 GM (3 GM, 2 IN 1 D), ORAL 9 GM (4.5 GM, 2 IN 1 D), ORAL 9 GM (4.5 GM, 2 IN 1 D), ORAL (UNKNOWN), O
     Route: 048
     Dates: start: 20110101, end: 20110101

REACTIONS (11)
  - HYPERHIDROSIS [None]
  - BACK PAIN [None]
  - FEELING COLD [None]
  - CONSTIPATION [None]
  - MUSCULOSKELETAL STIFFNESS [None]
  - JOINT DISLOCATION [None]
  - HIP FRACTURE [None]
  - FALL [None]
  - DECREASED APPETITE [None]
  - WEIGHT DECREASED [None]
  - INSOMNIA [None]
